FAERS Safety Report 9890601 (Version 1)
Quarter: 2014Q1

REPORT INFORMATION
  Report Type: Report from Study
  Country: MY (occurrence: MY)
  Receive Date: 20140212
  Receipt Date: 20140212
  Transmission Date: 20141002
  Serious: Yes (Hospitalization)
  Sender: FDA-Public Use
  Company Number: MY-BAYER-2014-017189

PATIENT
  Age: 52 Year
  Sex: Female

DRUGS (1)
  1. BLINDED ACETYLSALICYLIC ACID({=100 MG) [Suspect]
     Indication: THROMBOSIS PROPHYLAXIS

REACTIONS (2)
  - Device occlusion [Recovered/Resolved]
  - Catheter site haemorrhage [Recovered/Resolved]
